FAERS Safety Report 5989325-6 (Version None)
Quarter: 2008Q4

REPORT INFORMATION
  Report Type: 
  Country: None (occurrence: None)
  Receive Date: 20081205
  Receipt Date: 20081124
  Transmission Date: 20090506
  Serious: Yes (Death, Hospitalization, Other)
  Sender: FDA-Public Use
  Company Number: 54702

PATIENT
  Age: 41 Year
  Sex: Male

DRUGS (1)
  1. CYCLOSPORINE [Suspect]
     Indication: IMMUNOSUPPRESSION

REACTIONS (7)
  - ARTERIAL RUPTURE [None]
  - ASPERGILLOSIS [None]
  - BLOOD PRESSURE DECREASED [None]
  - COMPLICATIONS OF TRANSPLANTED LIVER [None]
  - HAEMORRHAGE [None]
  - MULTI-ORGAN FAILURE [None]
  - WOUND SECRETION [None]
